FAERS Safety Report 7386535-0 (Version None)
Quarter: 2011Q1

REPORT INFORMATION
  Report Type: 
  Country: None (occurrence: None)
  Receive Date: 20110331
  Receipt Date: 20110321
  Transmission Date: 20110831
  Serious: Yes (Death, Hospitalization, Other)
  Sender: FDA-Public Use
  Company Number: DE-ROCHE-734223

PATIENT
  Sex: Female
  Weight: 80 kg

DRUGS (6)
  1. GRANISETRON HCL [Concomitant]
     Indication: BRONCHIAL CARCINOMA
     Route: 042
     Dates: end: 20100930
  2. MARCUMAR [Suspect]
     Indication: PULMONARY EMBOLISM
     Route: 048
     Dates: start: 20101001
  3. CISPLATIN [Concomitant]
     Indication: BRONCHIAL CARCINOMA
     Route: 042
     Dates: end: 20100930
  4. BEVACIZUMAB [Suspect]
     Indication: BRONCHIAL CARCINOMA
     Route: 042
     Dates: end: 20100930
  5. ALIMTA [Suspect]
     Indication: BRONCHIAL CARCINOMA
     Route: 042
     Dates: end: 20100930
  6. EMEND [Concomitant]
     Indication: BRONCHIAL CARCINOMA
     Route: 048
     Dates: end: 20100930

REACTIONS (4)
  - PULMONARY EMBOLISM [None]
  - METASTASES TO CENTRAL NERVOUS SYSTEM [None]
  - DIZZINESS [None]
  - CEREBRAL HAEMORRHAGE [None]
